FAERS Safety Report 4302714-0 (Version None)
Quarter: 2004Q1

REPORT INFORMATION
  Report Type: 
  Country: None (occurrence: None)
  Receive Date: 20040224
  Receipt Date: 20040211
  Transmission Date: 20041129
  Serious: Yes (Hospitalization, Other)
  Sender: FDA-Public Use
  Company Number: PHBS2004BE02051

PATIENT
  Age: 18 Year
  Sex: Female

DRUGS (12)
  1. CYCLOSPORINE [Suspect]
     Indication: RENAL TRANSPLANT
     Dosage: 5 MG/KG/DAY
     Route: 065
     Dates: end: 19980201
  2. AZATHIOPRINE [Concomitant]
     Dosage: 25 MG/DAY
  3. PREDNISOLONE [Concomitant]
     Dosage: 20 MG, QD
  4. PREDNISOLONE [Concomitant]
     Dosage: 5 MG, QD
  5. ENALAPRIL [Concomitant]
     Dosage: 20 MG, QD
  6. ATENOLOL [Concomitant]
     Dates: end: 19960101
  7. NIFEDIPINE [Concomitant]
  8. DIPYRIDAMOLE [Concomitant]
  9. CALCIUM CARBONATE [Concomitant]
  10. IRON SUPPLEMENTS [Concomitant]
  11. NITROFURANTOIN [Concomitant]
     Dosage: 100 MG, QD
  12. ORAL CONTRACEPTIVE NOS [Suspect]
     Route: 048
     Dates: start: 19970401

REACTIONS (9)
  - ACCIDENT [None]
  - ADENOMA BENIGN [None]
  - BLOOD PRESSURE INCREASED [None]
  - BREAST NECROSIS [None]
  - DISEASE RECURRENCE [None]
  - FIBROADENOMA OF BREAST [None]
  - GLOMERULONEPHRITIS MEMBRANOPROLIFERATIVE [None]
  - HAEMATOMA [None]
  - URINARY TRACT INFECTION [None]
